FAERS Safety Report 5607298-2 (Version None)
Quarter: 2008Q1

REPORT INFORMATION
  Report Type: 
  Country: None (occurrence: None)
  Receive Date: 20080130
  Receipt Date: 20080123
  Transmission Date: 20080703
  Serious: Yes (Other)
  Sender: FDA-Public Use
  Company Number: CH-JNJFOC-20080106623

PATIENT
  Sex: Female
  Weight: 2.4 kg

DRUGS (3)
  1. REMICADE [Suspect]
     Indication: DRUG EXPOSURE DURING PREGNANCY
  2. IMURAN [Concomitant]
     Indication: DRUG EXPOSURE DURING PREGNANCY
  3. PREDNISONE TAB [Concomitant]
     Indication: DRUG EXPOSURE DURING PREGNANCY

REACTIONS (1)
  - SMALL FOR DATES BABY [None]
